FAERS Safety Report 20343819 (Version 2)
Quarter: 2022Q1

REPORT INFORMATION
  Report Type: Report from Study
  Country: US (occurrence: US)
  Receive Date: 20220118
  Receipt Date: 20220124
  Transmission Date: 20220423
  Serious: Yes (Death, Other)
  Sender: FDA-Public Use
  Company Number: US-BAUSCH-BL-2020-001407

PATIENT
  Age: 65 Year
  Sex: Male
  Weight: 56.296 kg

DRUGS (10)
  1. XIFAXAN [Suspect]
     Active Substance: RIFAXIMIN
     Indication: Hepatic encephalopathy
     Dosage: STARTED A COUPLE OF YEARS PRIOR TO FU REPORT (01/NOV/2021)
     Route: 048
  2. XIFAXAN [Suspect]
     Active Substance: RIFAXIMIN
     Indication: Cryptogenic cirrhosis
     Route: 048
     Dates: end: 202110
  3. XIFAXAN [Suspect]
     Active Substance: RIFAXIMIN
     Dosage: RESTARTED
     Route: 048
     Dates: end: 2022
  4. LACTULOSE [Concomitant]
     Active Substance: LACTULOSE
     Indication: Product used for unknown indication
     Route: 048
  5. LISINOPRIL [Concomitant]
     Active Substance: LISINOPRIL
     Indication: Product used for unknown indication
     Route: 048
  6. ELIQUIS [Concomitant]
     Active Substance: APIXABAN
     Indication: Product used for unknown indication
     Route: 048
  7. ERGOCALCIFEROL [Concomitant]
     Active Substance: ERGOCALCIFEROL
     Indication: Product used for unknown indication
     Route: 048
  8. NOVOLOG [Concomitant]
     Active Substance: INSULIN ASPART
     Indication: Product used for unknown indication
  9. EFFEXOR [Concomitant]
     Active Substance: VENLAFAXINE HYDROCHLORIDE
     Indication: Product used for unknown indication
     Route: 048
  10. LEVEMIR [Concomitant]
     Active Substance: INSULIN DETEMIR
     Indication: Product used for unknown indication

REACTIONS (4)
  - Hepatic cirrhosis [Fatal]
  - Head injury [Unknown]
  - Fall [Unknown]
  - Therapy interrupted [Unknown]
